FAERS Safety Report 9808821 (Version 1)
Quarter: 2014Q1

REPORT INFORMATION
  Report Type: Spontaneous
  Country: US (occurrence: US)
  Receive Date: 20140110
  Receipt Date: 20140110
  Transmission Date: 20141002
  Serious: Yes (Death)
  Sender: FDA-Public Use
  Company Number: US-ASTRAZENECA-2014SE01463

PATIENT
  Age: 35 Year
  Sex: Male

DRUGS (8)
  1. OMEPRAZOLE [Suspect]
     Route: 048
  2. PAROXETINE [Suspect]
     Route: 048
  3. MORPHINE [Suspect]
     Route: 048
  4. GABAPENTIN [Suspect]
     Route: 048
  5. ALPRAZOLAM [Suspect]
     Route: 048
  6. HYDROXYZINE [Suspect]
     Route: 048
  7. TRAMADOL [Suspect]
     Route: 048
  8. LORAZEPAM [Suspect]
     Route: 048

REACTIONS (2)
  - Toxicity to various agents [Fatal]
  - Cardio-respiratory arrest [Fatal]
